FAERS Safety Report 5742047-9 (Version None)
Quarter: 2008Q2

REPORT INFORMATION
  Report Type: 
  Country: None (occurrence: None)
  Receive Date: 20080514
  Receipt Date: 20080514
  Transmission Date: 20081010
  Serious: Yes (Hospitalization)
  Sender: FDA-Public Use
  Company Number: None

PATIENT
  Sex: Female
  Weight: 62.5964 kg

DRUGS (1)
  1. LARIAM [Suspect]
     Indication: MALARIA PROPHYLAXIS
     Dosage: 1 PILL ONCE A WEEK PO
     Route: 048
     Dates: start: 20050612, end: 20051005

REACTIONS (4)
  - HALLUCINATION [None]
  - HEADACHE [None]
  - NAUSEA [None]
  - VERTIGO [None]
